FAERS Safety Report 8002028-1 (Version None)
Quarter: 2011Q4

REPORT INFORMATION
  Report Type: 
  Country: None (occurrence: None)
  Receive Date: 20111222
  Receipt Date: 20111212
  Transmission Date: 20120403
  Serious: Yes (Death, Hospitalization)
  Sender: FDA-Public Use
  Company Number: IT-BRISTOL-MYERS SQUIBB COMPANY-16284150

PATIENT
  Age: 76 Year
  Sex: Male

DRUGS (3)
  1. HYDROXYUREA [Suspect]
     Indication: THROMBOCYTOSIS
  2. GEMCITABINE [Suspect]
     Indication: LUNG ADENOCARCINOMA
  3. CARBOPLATIN [Suspect]
     Indication: LUNG ADENOCARCINOMA

REACTIONS (2)
  - LEUKOPENIA [None]
  - PROGRESSIVE MULTIFOCAL LEUKOENCEPHALOPATHY [None]
